FAERS Safety Report 10153830 (Version 1)
Quarter: 2014Q2

REPORT INFORMATION
  Report Type: Spontaneous
  Country: GB (occurrence: GB)
  Receive Date: 20140506
  Receipt Date: 20140506
  Transmission Date: 20141212
  Serious: Yes (Hospitalization)
  Sender: FDA-Public Use
  Company Number: GB-RANBAXY-2014R1-80592

PATIENT
  Age: 14 Year
  Sex: Female

DRUGS (1)
  1. MIDAZOLAM [Suspect]
     Indication: SEDATIVE THERAPY
     Route: 042

REACTIONS (1)
  - Loss of consciousness [Recovered/Resolved]
